FAERS Safety Report 7970135-5 (Version None)
Quarter: 2011Q4

REPORT INFORMATION
  Report Type: 
  Country: None (occurrence: None)
  Receive Date: 20111212
  Receipt Date: 20111130
  Transmission Date: 20120403
  Serious: Yes (Other)
  Sender: FDA-Public Use
  Company Number: US-JNJFOC-20111201125

PATIENT
  Sex: Female
  Weight: 51.26 kg

DRUGS (1)
  1. REMICADE [Suspect]
     Indication: CROHN'S DISEASE
     Route: 042
     Dates: start: 20000118, end: 20031201

REACTIONS (15)
  - STAPHYLOCOCCAL INFECTION [None]
  - STRESS [None]
  - HAEMOPHILIA [None]
  - OESOPHAGEAL INJURY [None]
  - DOUBLE STRANDED DNA ANTIBODY [None]
  - SERUM SICKNESS [None]
  - MYOCARDIAL INFARCTION [None]
  - INCORRECT DOSE ADMINISTERED [None]
  - ADVERSE EVENT [None]
  - SPUTUM INCREASED [None]
  - STEVENS-JOHNSON SYNDROME [None]
  - WEIGHT INCREASED [None]
  - RASH [None]
  - CRANIOCEREBRAL INJURY [None]
  - APHAGIA [None]
